FAERS Safety Report 9813498 (Version 1)
Quarter: 2014Q1

REPORT INFORMATION
  Report Type: Spontaneous
  Country: US (occurrence: None)
  Receive Date: 20140109
  Receipt Date: 20140109
  Transmission Date: 20141002
  Serious: Yes (Other)
  Sender: FDA-Public Use
  Company Number: AUR-APL-2014-00092

PATIENT
  Age: 42 Year
  Sex: Female

DRUGS (1)
  1. GABAPENTIN [Suspect]
     Indication: OFF LABEL USE
     Dosage: (600 MG, 1 D), UNKNOWN
     Dates: start: 20130521, end: 20130625

REACTIONS (4)
  - Amniotic cavity infection [None]
  - Abortion spontaneous [None]
  - Uterine inversion [None]
  - Exposure during pregnancy [None]
